FAERS Safety Report 17145504 (Version 1)
Quarter: 2019Q4

REPORT INFORMATION
  Report Type: Spontaneous
  Country: US (occurrence: US)
  Receive Date: 20191211
  Receipt Date: 20191211
  Transmission Date: 20200122
  Serious: No
  Sender: FDA-Public Use
  Company Number: None

PATIENT
  Age: 57 Year
  Sex: Female
  Weight: 76.5 kg

DRUGS (1)
  1. PROAIR HFA [Suspect]
     Active Substance: ALBUTEROL SULFATE
     Indication: ASTHMA
     Dosage: ?          OTHER STRENGTH:200 METER DOSES;QUANTITY:2 PUFF(S);?
     Route: 055
     Dates: start: 20191201, end: 20191211

REACTIONS (2)
  - Drug ineffective [None]
  - Device issue [None]

NARRATIVE: CASE EVENT DATE: 20191211
